FAERS Safety Report 9339328 (Version 2)
Quarter: 2016Q2

REPORT INFORMATION
  Report Type: Spontaneous
  Country: BR (occurrence: BR)
  Receive Date: 20130610
  Receipt Date: 20160601
  Transmission Date: 20160815
  Serious: Yes (Hospitalization)
  Sender: FDA-Public Use
  Company Number: BR-ROCHE-1234408

PATIENT
  Sex: Female

DRUGS (1)
  1. ROACCUTANE [Suspect]
     Active Substance: ISOTRETINOIN
     Indication: ACNE
     Route: 048
     Dates: start: 201212

REACTIONS (5)
  - Breast prosthesis removal [Recovered/Resolved]
  - Wound dehiscence [Recovered/Resolved]
  - Skin atrophy [Unknown]
  - Ill-defined disorder [Recovered/Resolved]
  - Skin discolouration [Unknown]

NARRATIVE: CASE EVENT DATE: 201212
